FAERS Safety Report 7441889-1 (Version None)
Quarter: 2011Q2

REPORT INFORMATION
  Report Type: 
  Country: None (occurrence: None)
  Receive Date: 20110428
  Receipt Date: 20100728
  Transmission Date: 20111010
  Serious: No
  Sender: FDA-Public Use
  Company Number: US-ASTRAZENECA-2010SE35391

PATIENT
  Age: 40 Year
  Sex: Female

DRUGS (1)
  1. ZOMIG [Suspect]
     Indication: MIGRAINE
     Route: 065
     Dates: start: 20020101

REACTIONS (2)
  - DRUG INEFFECTIVE [None]
  - MIGRAINE [None]
